FAERS Safety Report 8376281-9 (Version None)
Quarter: 2012Q2

REPORT INFORMATION
  Report Type: 
  Country: None (occurrence: None)
  Receive Date: 20120518
  Receipt Date: 20120503
  Transmission Date: 20120825
  Serious: Yes (Life-Threatening, Hospitalization, Other)
  Sender: FDA-Public Use
  Company Number: 2012P1018377

PATIENT
  Age: 78 Year
  Sex: Male
  Weight: 79.8331 kg

DRUGS (7)
  1. METRONIDAZOLE [Concomitant]
  2. CEFUROXIME [Suspect]
     Indication: ANTIBIOTIC PROPHYLAXIS
     Dosage: 1.5 GM; IV
     Route: 042
     Dates: start: 20120413, end: 20120413
  3. CHLORHEXIDINE GLUCONATE [Suspect]
     Indication: INFECTION PROPHYLAXIS
     Dosage: TOP
     Route: 061
     Dates: start: 20120413, end: 20120413
  4. ROCURONIUM BROMIDE [Suspect]
     Indication: GENERAL ANAESTHESIA
     Dosage: 40 MG; IV
     Route: 042
     Dates: start: 20120413, end: 20120413
  5. POVIDONE IODINE [Concomitant]
  6. PROPOFOL [Concomitant]
  7. REMIFENTANIL HCL [Concomitant]

REACTIONS (5)
  - DRUG HYPERSENSITIVITY [None]
  - NO THERAPEUTIC RESPONSE [None]
  - FLUSHING [None]
  - OXYGEN SATURATION DECREASED [None]
  - HYPOTENSION [None]
